FAERS Safety Report 7507945-4 (Version None)
Quarter: 2011Q2

REPORT INFORMATION
  Report Type: 
  Country: None (occurrence: None)
  Receive Date: 20110519
  Receipt Date: 20110510
  Transmission Date: 20111010
  Serious: Yes (Death, Hospitalization)
  Sender: FDA-Public Use
  Company Number: DKLU1067438

PATIENT
  Age: 1 Year
  Sex: Male

DRUGS (6)
  1. ROBINUL (GLYCOPYRRONIUM BROMIDE) [Concomitant]
  2. SABRIL [Suspect]
     Indication: EPILEPSY
     Dosage: 500 MG MILLIGRAM'S, 2 IN 1 D, ORAL
     Route: 048
  3. MIRALAX [Concomitant]
  4. KEPPRA [Concomitant]
  5. ZONEGRAN [Concomitant]
  6. ATIVAN [Concomitant]

REACTIONS (1)
  - HOSPITALISATION [None]
